FAERS Safety Report 13013382 (Version 1)
Quarter: 2016Q4

REPORT INFORMATION
  Report Type: Spontaneous
  Country: US (occurrence: US)
  Receive Date: 20161209
  Receipt Date: 20161209
  Transmission Date: 20170207
  Serious: No
  Sender: FDA-Public Use
  Company Number: US-WOCKHARDT USA, LLC-1060614

PATIENT
  Age: 27 Year
  Sex: Female

DRUGS (1)
  1. BETHANECHOL CHLORIDE. [Suspect]
     Active Substance: BETHANECHOL CHLORIDE

REACTIONS (1)
  - Drug ineffective [Unknown]
